FAERS Safety Report 8616457 (Version 3)
Quarter: 2014Q1

REPORT INFORMATION
  Report Type: Spontaneous
  Country: US (occurrence: US)
  Receive Date: 20120615
  Receipt Date: 20140123
  Transmission Date: 20141002
  Serious: Yes (Hospitalization)
  Sender: FDA-Public Use
  Company Number: US-ASTRAZENECA-2012SE36181

PATIENT
  Age: 63 Year
  Sex: Female

DRUGS (10)
  1. NEXIUM [Suspect]
     Indication: BARRETT^S OESOPHAGUS
     Dosage: THREE TIME A DAY
     Route: 048
     Dates: start: 2001
  2. NEXIUM [Suspect]
     Indication: BARRETT^S OESOPHAGUS
     Route: 048
     Dates: start: 20030926
  3. ZANTAC [Concomitant]
  4. TUMS [Concomitant]
  5. ALKA SELTZER [Concomitant]
  6. ROLAIDS [Concomitant]
  7. MYLANTA [Concomitant]
  8. TOPROL XL [Concomitant]
     Dates: start: 20031001
  9. LIPITOR [Concomitant]
     Dates: start: 20030215
  10. ISOSORBIDE MONONITRATE [Concomitant]
     Dates: start: 20030922

REACTIONS (4)
  - Ulcer haemorrhage [Unknown]
  - Osteoporosis [Unknown]
  - Arthritis [Unknown]
  - Multiple fractures [Unknown]
